FAERS Safety Report 4597550-4 (Version None)
Quarter: 2005Q1

REPORT INFORMATION
  Report Type: 
  Country: None (occurrence: None)
  Receive Date: 20050228
  Receipt Date: 20050228
  Transmission Date: 20050727
  Serious: No
  Sender: FDA-Public Use
  Company Number: None

PATIENT
  Sex: Female
  Weight: 48.1 kg

DRUGS (2)
  1. LEUCOVORIN [Suspect]
     Dosage: 500 MG /M2 IV OVER 2 HOURS ON DAY 1 WEEKLY X 6 , EVERY 8 WEEKS FOR 3 CYCLES
     Route: 042
     Dates: start: 20040229
  2. FLUOROURACIL [Suspect]
     Dosage: 500 MG/M2 IV BOLUS ON DAY 1 WEEKLY X 6, EVERY 8 WEEKS FOR 3 CYCLES
     Route: 040

REACTIONS (10)
  - ABDOMINAL PAIN [None]
  - ANOREXIA [None]
  - BILIARY DILATATION [None]
  - DEHYDRATION [None]
  - DIARRHOEA [None]
  - HEPATITIS [None]
  - LYMPHOPENIA [None]
  - MUSCULAR WEAKNESS [None]
  - NAUSEA [None]
  - NEUTROPENIA [None]
